FAERS Safety Report 8916726 (Version 1)
Quarter: 2012Q4

REPORT INFORMATION
  Report Type: 
  Country: FR (occurrence: FR)
  Receive Date: 20121120
  Receipt Date: 20121120
  Transmission Date: 20130627
  Serious: Yes (Hospitalization)
  Sender: FDA-Public Use
  Company Number: FR-UCBSA-071128

PATIENT
  Age: 58 Year
  Sex: Female

DRUGS (2)
  1. KEPPRA [Suspect]
     Indication: EPILEPSY
     Route: 048
     Dates: start: 201204, end: 201204
  2. SOLUMEDROL [Concomitant]
     Dosage: 250MG DAILY
     Dates: start: 201204, end: 201204

REACTIONS (1)
  - Hepatitis cholestatic [Recovering/Resolving]
